FAERS Safety Report 9104650 (Version 1)
Quarter: 2013Q1

REPORT INFORMATION
  Report Type: Spontaneous
  Country: US (occurrence: US)
  Receive Date: 20130220
  Receipt Date: 20130220
  Transmission Date: 20140127
  Serious: No
  Sender: FDA-Public Use
  Company Number: US-PFIZER INC-2013039113

PATIENT
  Age: 53 Year
  Sex: Female
  Weight: 81.63 kg

DRUGS (1)
  1. PRISTIQ [Suspect]
     Dosage: 50 MG, DAILY
     Dates: end: 201301

REACTIONS (3)
  - Crying [Not Recovered/Not Resolved]
  - Emotional disorder [Not Recovered/Not Resolved]
  - Mental disorder [Not Recovered/Not Resolved]
